FAERS Safety Report 9422403 (Version 1)
Quarter: 2013Q3

REPORT INFORMATION
  Report Type: Spontaneous
  Country: NO (occurrence: None)
  Receive Date: 20130724
  Receipt Date: 20130724
  Transmission Date: 20140515
  Serious: Yes (Hospitalization)
  Sender: FDA-Public Use
  Company Number: NO-20120007

PATIENT
  Age: 23 Year
  Sex: Female

DRUGS (1)
  1. DOTAREM [Suspect]
     Dosage: 15 ML (15 ML, 1 IN 1D) INTRAVENOUS (NOT OTHERWISE SPECIFED)
     Route: 042
     Dates: start: 20121218, end: 20121218

REACTIONS (6)
  - Eye swelling [None]
  - Laryngeal oedema [None]
  - Swelling face [None]
  - Tachycardia [None]
  - Dysphonia [None]
  - Angioedema [None]
